FAERS Safety Report 19992620 (Version 1)
Quarter: 2021Q4

REPORT INFORMATION
  Report Type: Spontaneous
  Country: US (occurrence: US)
  Receive Date: 20211026
  Receipt Date: 20211026
  Transmission Date: 20220303
  Serious: Yes (Hospitalization)
  Sender: FDA-Public Use
  Company Number: US-AUROBINDO-AUR-APL-2021-042993

PATIENT
  Age: 16 Year
  Sex: Female

DRUGS (1)
  1. BUSPIRONE HYDROCHLORIDE [Suspect]
     Active Substance: BUSPIRONE HYDROCHLORIDE
     Indication: Intentional self-injury
     Dosage: 450 MILLIGRAM (7.6 MG/KG)
     Route: 065

REACTIONS (8)
  - Intentional overdose [Unknown]
  - Dizziness [Recovered/Resolved]
  - Anion gap abnormal [Unknown]
  - Blood bicarbonate abnormal [Recovered/Resolved]
  - Blood lactic acid increased [Recovered/Resolved]
  - Drug level increased [Unknown]
  - Somnolence [Recovered/Resolved]
  - Nausea [Recovered/Resolved]
